FAERS Safety Report 8912001 (Version 3)
Quarter: 2013Q2

REPORT INFORMATION
  Report Type: Report from Study
  Country: ES (occurrence: ES)
  Receive Date: 20121115
  Receipt Date: 20130607
  Transmission Date: 20140414
  Serious: Yes (Life-Threatening, Hospitalization, Other)
  Sender: FDA-Public Use
  Company Number: ES-ABBOTT-12P-144-1004964-00

PATIENT
  Age: 46 Year
  Sex: Female

DRUGS (3)
  1. HUMIRA [Suspect]
     Indication: CROHN^S DISEASE
     Dosage: 160 MG (BASELINE)/80 MG (WEEK 2)
     Route: 058
     Dates: start: 20070615
  2. HUMIRA [Suspect]
     Route: 058
     Dates: start: 20120214, end: 20120812
  3. FERROGRADUMET [Concomitant]
     Indication: IRON DEFICIENCY ANAEMIA
     Dates: start: 20111220

REACTIONS (1)
  - Hodgkin^s disease [Not Recovered/Not Resolved]
